FAERS Safety Report 12877612 (Version 3)
Quarter: 2016Q4

REPORT INFORMATION
  Report Type: Spontaneous
  Country: US (occurrence: US)
  Receive Date: 20161024
  Receipt Date: 20161125
  Transmission Date: 20170207
  Serious: No
  Sender: FDA-Public Use
  Company Number: US-B.I. PHARMACEUTICALS,INC./RIDGEFIELD-2016-BI-066699

PATIENT
  Age: 66 Year
  Sex: Female
  Weight: 108 kg

DRUGS (1)
  1. TRADJENTA [Suspect]
     Active Substance: LINAGLIPTIN
     Indication: TYPE 2 DIABETES MELLITUS
     Route: 048
     Dates: start: 20160910, end: 20160917

REACTIONS (1)
  - Cheilitis [Recovered/Resolved]

NARRATIVE: CASE EVENT DATE: 20160910
